FAERS Safety Report 4985266-1 (Version None)
Quarter: 2006Q2

REPORT INFORMATION
  Report Type: 
  Country: None (occurrence: None)
  Receive Date: 20060427
  Receipt Date: 20060419
  Transmission Date: 20061013
  Serious: Yes (Hospitalization)
  Sender: FDA-Public Use
  Company Number: US-MERCK-0604USA03174

PATIENT
  Age: 71 Year
  Sex: Female

DRUGS (8)
  1. VYTORIN [Suspect]
     Route: 048
     Dates: start: 20051212, end: 20060302
  2. PREVACID [Concomitant]
     Route: 065
  3. ENALAPRIL MALEATE [Concomitant]
     Route: 065
  4. ADVAIR DISKUS 100/50 [Concomitant]
     Route: 065
  5. ALBUTEROL [Concomitant]
     Route: 065
  6. VITAMINS (UNSPECIFIED) [Concomitant]
     Route: 065
  7. ACTONEL [Concomitant]
     Route: 065
  8. LEXAPRO [Concomitant]
     Route: 065

REACTIONS (3)
  - ALANINE AMINOTRANSFERASE INCREASED [None]
  - HEPATIC FAILURE [None]
  - LIVER TRANSPLANT [None]
